FAERS Safety Report 8956961 (Version 1)
Quarter: 2012Q4

REPORT INFORMATION
  Report Type: 
  Country: US (occurrence: US)
  Receive Date: 20121211
  Receipt Date: 20121211
  Transmission Date: 20130627
  Serious: No
  Sender: FDA-Public Use
  Company Number: US-009507513-1212USA003053

PATIENT
  Age: 61 Year
  Sex: Male
  Weight: 86.17 kg

DRUGS (5)
  1. VICTRELIS [Suspect]
     Indication: HEPATITIS C
     Dosage: 4 DF, tid,Frequency: 4 capsules by mouth 3 times a day with light meal or snack.
     Route: 048
  2. RIBAVIRIN [Suspect]
     Indication: HEPATITIS C
  3. PEGINTRON [Suspect]
     Indication: HEPATITIS C
  4. ZOLOFT [Concomitant]
  5. GLIMEPIRIDE [Concomitant]

REACTIONS (1)
  - White blood cell count decreased [Unknown]
